FAERS Safety Report 18599561 (Version 1)
Quarter: 2020Q4

REPORT INFORMATION
  Report Type: Spontaneous
  Country: US (occurrence: US)
  Receive Date: 20201209
  Receipt Date: 20201209
  Transmission Date: 20210114
  Serious: Yes (Other)
  Sender: FDA-Public Use
  Company Number: None

PATIENT
  Age: 28 Year
  Sex: Female
  Weight: 65.25 kg

DRUGS (4)
  1. ADDERALL XR [Concomitant]
     Active Substance: AMPHETAMINE ASPARTATE\AMPHETAMINE SULFATE\DEXTROAMPHETAMINE SACCHARATE\DEXTROAMPHETAMINE SULFATE
  2. MEDROXYPROGESTERONE [Concomitant]
     Active Substance: MEDROXYPROGESTERONE
  3. ADVIL [Concomitant]
     Active Substance: IBUPROFEN
  4. AIMOVIG [Suspect]
     Active Substance: ERENUMAB-AOOE
     Dosage: ?          OTHER FREQUENCY:1 TIME MONTHLY;?
     Route: 058
     Dates: start: 20201101, end: 20201201

REACTIONS (11)
  - Fatigue [None]
  - Tinnitus [None]
  - Hot flush [None]
  - Influenza like illness [None]
  - Arthralgia [None]
  - Feeling cold [None]
  - Peripheral coldness [None]
  - Menstrual disorder [None]
  - Skin discolouration [None]
  - Back pain [None]
  - Dizziness [None]

NARRATIVE: CASE EVENT DATE: 20201101
